FAERS Safety Report 5924952-3 (Version None)
Quarter: 2008Q4

REPORT INFORMATION
  Report Type: 
  Country: None (occurrence: None)
  Receive Date: 20081020
  Receipt Date: 20081020
  Transmission Date: 20090506
  Serious: Yes (Hospitalization)
  Sender: FDA-Public Use
  Company Number: None

PATIENT
  Sex: Male
  Weight: 68.0396 kg

DRUGS (3)
  1. ABRAXENE, 100 MILLIGRAMS PER VIAL, ABRAXIS [Suspect]
     Indication: PANCREATIC CARCINOMA
     Dosage: 100 MG/M2 Q WK IV
     Route: 042
     Dates: start: 20080822
  2. DEXAMETHASONE [Concomitant]
  3. ONDANSETRON [Concomitant]

REACTIONS (3)
  - ABDOMINAL PAIN [None]
  - ADHESION [None]
  - VOMITING [None]
